FAERS Safety Report 8218705-3 (Version None)
Quarter: 2012Q1

REPORT INFORMATION
  Report Type: 
  Country: None (occurrence: None)
  Receive Date: 20120319
  Receipt Date: 20120309
  Transmission Date: 20120608
  Serious: Yes (Hospitalization)
  Sender: FDA-Public Use
  Company Number: PHEH2012US005850

PATIENT
  Sex: Male
  Weight: 81.36 kg

DRUGS (8)
  1. EXJADE [Suspect]
     Indication: MYELODYSPLASTIC SYNDROME
     Dosage: 1500 MG, DAILY
     Route: 048
     Dates: start: 20080328
  2. PROTONIX [Concomitant]
     Dosage: 40 MG, DAILY
     Route: 048
  3. SPIRONOLACTONE [Concomitant]
     Dosage: 25 MG, DAILY
     Route: 048
  4. DIGOXIN [Concomitant]
     Dosage: 125 UG, DAILY
     Route: 048
  5. SOTALOL HCL [Concomitant]
     Dosage: 2.5 DF, BID
     Route: 048
  6. FUROSEMIDE [Concomitant]
     Dosage: 40 MG, DAILY
     Route: 048
  7. COUMADIN [Concomitant]
     Dosage: 5 MG, DAILY
  8. SYNTHROID [Concomitant]
     Dosage: 50 UG, DAILY
     Route: 048

REACTIONS (3)
  - FEMUR FRACTURE [None]
  - FALL [None]
  - HIP FRACTURE [None]
